FAERS Safety Report 15850018 (Version 2)
Quarter: 2019Q4

REPORT INFORMATION
  Report Type: Report from Study
  Country: US (occurrence: US)
  Receive Date: 20190121
  Receipt Date: 20191018
  Transmission Date: 20200122
  Serious: No
  Sender: FDA-Public Use
  Company Number: US-SA-2019SA012480

PATIENT
  Age: 78 Year
  Sex: Male

DRUGS (2)
  1. LANTUS [Concomitant]
     Active Substance: INSULIN GLARGINE
     Indication: DIABETES MELLITUS
     Dosage: 40 U, QD
     Route: 058
  2. INSULIN GLULISINE [Suspect]
     Active Substance: INSULIN GLULISINE
     Indication: DIABETES MELLITUS
     Dosage: UNK UNK, QID (20 UNITS TO 25 UNITS, OR 80 UNITS TO 100 UNITS)
     Route: 058

REACTIONS (11)
  - Confusional state [Unknown]
  - Muscle spasms [Unknown]
  - Wrong product administered [Unknown]
  - Wrong technique in product usage process [Unknown]
  - Abdominal discomfort [Unknown]
  - Blood glucose increased [Unknown]
  - Blood glucose decreased [Unknown]
  - Overdose [Unknown]
  - Gait disturbance [Unknown]
  - Malaise [Unknown]
  - Hallucination [Unknown]
